FAERS Safety Report 13704038 (Version 1)
Quarter: 2017Q2

REPORT INFORMATION
  Report Type: Spontaneous
  Country: US (occurrence: US)
  Receive Date: 20170629
  Receipt Date: 20170629
  Transmission Date: 20170830
  Serious: Yes (Other)
  Sender: FDA-Public Use
  Company Number: US-MYLANLABS-2017M1038592

PATIENT

DRUGS (2)
  1. FLUTICASONE PROPIONATE (GLUCOCORTICOID) [Suspect]
     Active Substance: FLUTICASONE PROPIONATE
     Indication: PRODUCTIVE COUGH
     Dosage: UNK
  2. PREDNISONE. [Suspect]
     Active Substance: PREDNISONE
     Indication: VIRAL UPPER RESPIRATORY TRACT INFECTION
     Dosage: UNK

REACTIONS (3)
  - Glaucoma [Unknown]
  - Gait disturbance [Unknown]
  - Dizziness [Unknown]
